FAERS Safety Report 9845918 (Version 1)
Quarter: 2014Q1

REPORT INFORMATION
  Report Type: Spontaneous
  Country: IS (occurrence: IS)
  Receive Date: 20140127
  Receipt Date: 20140127
  Transmission Date: 20141002
  Serious: Yes (Other)
  Sender: FDA-Public Use
  Company Number: IS-ACTAVIS-2014-00736

PATIENT
  Sex: Female

DRUGS (17)
  1. METFORMIN (UNKNOWN) [Suspect]
     Indication: DIABETES MELLITUS
     Dosage: 500 MG, UNKNOWN
     Route: 065
  2. SERTRALINE (UNKNOWN) [Suspect]
     Indication: DEPRESSION
     Dosage: 100 MG, UNKNOWN
     Route: 065
  3. SERTRALINE (UNKNOWN) [Suspect]
     Dosage: 50 MG, UNKNOWN
     Route: 065
  4. RABEPRAZOLE [Suspect]
     Indication: ANTACID THERAPY
     Dosage: 20 MG, UNKNOWN
     Route: 065
  5. METOPROLOL SUCCINATE (UNKNOWN) [Suspect]
     Indication: HYPERTENSION
     Dosage: 23.75 MG, UNKNOWN
     Route: 065
  6. ATORVASTATIN CALCIUM (UNKNOWN) [Suspect]
     Indication: HYPERCHOLESTEROLAEMIA
     Dosage: 20 MG, UNKNOWN
     Route: 065
  7. PARACETAMOL-CODEINE PHOSPHATE (UNKNOWN) [Suspect]
     Indication: ANALGESIC THERAPY
     Dosage: UNK
     Route: 065
  8. TRAMADOL (UNKNOWN) [Interacting]
     Indication: ANALGESIC THERAPY
     Dosage: UNK
     Route: 065
  9. CLOMIPRAMINE (UNKNOWN) [Interacting]
     Indication: DEPRESSION
     Dosage: 75 MG, BID
     Route: 065
  10. DULOXETINE HYDROCHLORIDE (AELLC) [Interacting]
     Indication: DEPRESSION
     Dosage: 30 MG, UNKNOWN
     Route: 065
  11. METHYLPHENIDATE HYDROCHLORIDE (WATSON LABORATORIES) [Interacting]
     Indication: ATTENTION DEFICIT/HYPERACTIVITY DISORDER
     Dosage: 54 MG, UNKNOWN
     Route: 065
  12. LEVOTHYROXINE (UNKNOWN) [Suspect]
     Indication: THYROID DISORDER
     Dosage: 150 MCG, UNK
     Route: 065
  13. MAGNESIUM [Suspect]
     Indication: PRODUCT USED FOR UNKNOWN INDICATION
     Dosage: 250 MG, UNKNOWN
     Route: 065
  14. LEVOMEPROMAZINE [Interacting]
     Indication: SLEEP DISORDER
     Dosage: 50 MG, UNKNOWN
     Route: 065
  15. LEVOMEPROMAZINE [Interacting]
     Dosage: 25 MG, UNKNOWN
     Route: 065
  16. MODAFINIL [Suspect]
     Indication: DEPRESSED LEVEL OF CONSCIOUSNESS
     Dosage: 400 MG, UNKNOWN
     Route: 065
  17. MODAFINIL [Suspect]
     Dosage: 100 MG, UNKNOWN
     Route: 065

REACTIONS (9)
  - Renal failure chronic [Unknown]
  - Serotonin syndrome [Recovering/Resolving]
  - Orthostatic hypotension [Recovered/Resolved]
  - Palpitations [Recovered/Resolved]
  - Drug interaction [Unknown]
  - Decreased appetite [Unknown]
  - Weight decreased [Unknown]
  - Dry mouth [Recovered/Resolved]
  - Pruritus [Unknown]
